FAERS Safety Report 4865611-8 (Version None)
Quarter: 2005Q4

REPORT INFORMATION
  Report Type: 
  Country: None (occurrence: None)
  Receive Date: 20051220
  Receipt Date: 20051207
  Transmission Date: 20060501
  Serious: Yes (Other)
  Sender: FDA-Public Use
  Company Number: 2005167578

PATIENT
  Sex: Male
  Weight: 77.1115 kg

DRUGS (6)
  1. XALATAN [Suspect]
     Indication: INTRAOCULAR PRESSURE INCREASED
     Dosage: OPHTHALMIC
     Route: 047
  2. BETIMOL (TIMOLOL) [Concomitant]
  3. LIPITOR [Concomitant]
  4. MULTIVITAMIN [Concomitant]
  5. FOLIC ACID [Concomitant]
  6. FISH OIL (FISH OIL) [Concomitant]

REACTIONS (4)
  - BENIGN PROSTATIC HYPERPLASIA [None]
  - HYPERTENSION [None]
  - MACULAR HOLE [None]
  - PROSTATE CANCER [None]
